FAERS Safety Report 4755054-X (Version None)
Quarter: 2005Q3

REPORT INFORMATION
  Report Type: 
  Country: None (occurrence: None)
  Receive Date: 20050829
  Receipt Date: 20050823
  Transmission Date: 20060218
  Serious: Yes (Other)
  Sender: FDA-Public Use
  Company Number: PHBS2005AT12316

PATIENT
  Age: 62 Year
  Sex: Male

DRUGS (13)
  1. MYCOPHENOLATE MOFETIL [Suspect]
     Indication: HEART TRANSPLANT
     Dosage: 3000 MG/D
     Route: 065
  2. MYCOPHENOLATE MOFETIL [Suspect]
     Dosage: 500 MG/D
     Route: 065
  3. PREDNISOLONE [Suspect]
     Indication: HEART TRANSPLANT
  4. CHOP [Suspect]
     Dosage: ONCE EVERY 3 WEEKS
  5. DEXAMETHASONE [Suspect]
  6. CARMUSTINE [Suspect]
  7. ETOPOSIDE [Suspect]
  8. CYTARABINE [Suspect]
  9. MELPHALAN [Suspect]
  10. CYCLOSPORINE [Suspect]
     Indication: HEART TRANSPLANT
     Route: 065
  11. TACROLIMUS [Suspect]
     Indication: HEART TRANSPLANT
     Dosage: 2 MG/D
     Route: 065
  12. TACROLIMUS [Suspect]
     Dosage: 4 MG/D
     Route: 065
  13. TACROLIMUS [Suspect]
     Dosage: UPTO 8 MG/D
     Route: 065

REACTIONS (8)
  - ACUTE PULMONARY OEDEMA [None]
  - BONE MARROW DISORDER [None]
  - CARDIAC FAILURE [None]
  - DIFFUSE LARGE B-CELL LYMPHOMA STAGE III [None]
  - LUNG DISORDER [None]
  - LYMPHADENOPATHY [None]
  - LYMPHOPROLIFERATIVE DISORDER [None]
  - RENAL IMPAIRMENT [None]
